FAERS Safety Report 4462805-0 (Version None)
Quarter: 2004Q3

REPORT INFORMATION
  Report Type: 
  Country: None (occurrence: None)
  Receive Date: 20040927
  Receipt Date: 20040913
  Transmission Date: 20050211
  Serious: Yes (Other)
  Sender: FDA-Public Use
  Company Number: 2004025544

PATIENT
  Sex: Female

DRUGS (3)
  1. GEODON [Suspect]
     Indication: ILL-DEFINED DISORDER
  2. TOPIRAMATE [Concomitant]
  3. LORAZEPAM [Concomitant]

REACTIONS (1)
  - PITUITARY TUMOUR BENIGN [None]
